FAERS Safety Report 10178186 (Version 3)
Quarter: 2014Q2

REPORT INFORMATION
  Report Type: Report from Study
  Country: CA (occurrence: CA)
  Receive Date: 20140519
  Receipt Date: 20140630
  Transmission Date: 20141212
  Serious: Yes (Other)
  Sender: FDA-Public Use
  Company Number: CA-ROCHE-1402509

PATIENT
  Sex: Female

DRUGS (5)
  1. AVASTIN [Suspect]
     Indication: OVARIAN CANCER
     Route: 042
     Dates: start: 20140402, end: 20140423
  2. METFORMIN [Concomitant]
  3. MORPHINE [Concomitant]
     Dosage: FREQUENCY: AS REQUIRED.
     Route: 065
  4. LIPITOR [Concomitant]
     Indication: BLOOD CHOLESTEROL
  5. TRAMADOL [Concomitant]
     Indication: ANALGESIC THERAPY

REACTIONS (3)
  - Pneumothorax [Not Recovered/Not Resolved]
  - Malignant neoplasm progression [Not Recovered/Not Resolved]
  - Off label use [Unknown]
